FAERS Safety Report 17613942 (Version 2)
Quarter: 2020Q2

REPORT INFORMATION
  Report Type: Spontaneous
  Country: CN (occurrence: CN)
  Receive Date: 20200402
  Receipt Date: 20200403
  Transmission Date: 20200713
  Serious: Yes (Other)
  Sender: FDA-Public Use
  Company Number: CN-ROCHE-2572133

PATIENT
  Age: 56 Year
  Sex: Male

DRUGS (8)
  1. AVASTIN [Suspect]
     Active Substance: BEVACIZUMAB
     Indication: LUNG ADENOCARCINOMA
     Route: 065
     Dates: start: 201811
  2. OSIMERTINIB. [Concomitant]
     Active Substance: OSIMERTINIB
     Indication: LUNG ADENOCARCINOMA
     Route: 065
     Dates: start: 201707
  3. ICOTINIB [Concomitant]
     Active Substance: ICOTINIB
     Indication: LUNG ADENOCARCINOMA
     Route: 065
     Dates: start: 201610
  4. CATEQUENTINIB. [Concomitant]
     Active Substance: CATEQUENTINIB
     Indication: LUNG ADENOCARCINOMA
     Route: 065
     Dates: start: 201812
  5. PEMBROLIZUMAB. [Concomitant]
     Active Substance: PEMBROLIZUMAB
     Indication: LUNG ADENOCARCINOMA
     Route: 065
     Dates: start: 20190508
  6. PEMBROLIZUMAB. [Concomitant]
     Active Substance: PEMBROLIZUMAB
     Dosage: 3-4 WEEKS A CYCLE
     Route: 065
     Dates: start: 20190802
  7. CISPLATIN. [Concomitant]
     Active Substance: CISPLATIN
     Indication: LUNG ADENOCARCINOMA
     Route: 065
     Dates: start: 201811
  8. PEMETREXED. [Concomitant]
     Active Substance: PEMETREXED
     Indication: LUNG ADENOCARCINOMA
     Route: 065
     Dates: start: 20190802

REACTIONS (5)
  - Sinus disorder [Unknown]
  - Respiratory failure [Unknown]
  - Pneumonia [Unknown]
  - Nasal septum deviation [Unknown]
  - Sinusitis [Unknown]
